FAERS Safety Report 9089586 (Version 1)
Quarter: 2013Q1

REPORT INFORMATION
  Report Type: Spontaneous
  Country: US (occurrence: US)
  Receive Date: 20130201
  Receipt Date: 20130201
  Transmission Date: 20140127
  Serious: No
  Sender: FDA-Public Use
  Company Number: US-PFIZER INC-2013039621

PATIENT
  Age: 69 Year
  Sex: Male
  Weight: 54.42 kg

DRUGS (2)
  1. ADVIL PM [Suspect]
     Indication: INSOMNIA
     Dosage: 400/76 MG, DAILY
     Dates: start: 2012
  2. SINEMET [Suspect]
     Indication: PARKINSONISM
     Dosage: 50/200 MG, 3X/DAY

REACTIONS (3)
  - Intentional drug misuse [Unknown]
  - Rash generalised [Not Recovered/Not Resolved]
  - Urticaria [Not Recovered/Not Resolved]
